FAERS Safety Report 17558024 (Version 2)
Quarter: 2020Q2

REPORT INFORMATION
  Report Type: Spontaneous
  Country: DE (occurrence: DE)
  Receive Date: 20200318
  Receipt Date: 20200603
  Transmission Date: 20200713
  Serious: Yes (Life-Threatening, Hospitalization, Other)
  Sender: FDA-Public Use
  Company Number: NVSC2020DE077041

PATIENT
  Age: 32 Year
  Sex: Male

DRUGS (8)
  1. SILDENAFIL. [Concomitant]
     Active Substance: SILDENAFIL
     Indication: PULMONARY HYPERTENSION
     Dosage: UNK
     Route: 065
  2. DOBUTAMIN [Concomitant]
     Active Substance: DOBUTAMINE HYDROCHLORIDE
     Indication: PRODUCT USED FOR UNKNOWN INDICATION
     Dosage: UNK
     Route: 065
  3. ARGATROBAN. [Suspect]
     Active Substance: ARGATROBAN
     Indication: ANTICOAGULANT THERAPY
  4. NORADRENALINE [Concomitant]
     Active Substance: NOREPINEPHRINE
     Indication: PRODUCT USED FOR UNKNOWN INDICATION
     Dosage: UNK
     Route: 065
  5. HEPARIN [Concomitant]
     Active Substance: HEPARIN SODIUM
     Indication: ANTICOAGULANT THERAPY
     Dosage: UNK
     Route: 042
  6. ILOPROST TROMETAMOL [Concomitant]
     Active Substance: ILOPROST TROMETHAMINE
     Indication: PULMONARY VASCULAR RESISTANCE ABNORMALITY
     Dosage: UNK
     Route: 065
  7. BOSENTAN. [Concomitant]
     Active Substance: BOSENTAN
     Indication: PULMONARY HYPERTENSION
     Dosage: UNK
     Route: 048
  8. ARGATROBAN. [Suspect]
     Active Substance: ARGATROBAN
     Indication: HEPARIN-INDUCED THROMBOCYTOPENIA
     Dosage: UNK
     Route: 042

REACTIONS (16)
  - Congenital arterial malformation [Unknown]
  - Pneumonia [Unknown]
  - Thrombosis [Unknown]
  - Acute respiratory failure [Unknown]
  - Dyspnoea [Unknown]
  - Atelectasis [Unknown]
  - Lung infiltration [Unknown]
  - Staphylococcal bacteraemia [Unknown]
  - Bicytopenia [Unknown]
  - Rash [Unknown]
  - Pneumonia bacterial [Unknown]
  - Heparin-induced thrombocytopenia [Unknown]
  - Bronchial obstruction [Unknown]
  - Pulmonary alveolar haemorrhage [Unknown]
  - Haemoptysis [Unknown]
  - Inflammatory marker increased [Unknown]
